FAERS Safety Report 19466754 (Version 1)
Quarter: 2021Q2

REPORT INFORMATION
  Report Type: Other
  Country: IT (occurrence: IT)
  Receive Date: 20210628
  Receipt Date: 20210628
  Transmission Date: 20210717
  Serious: Yes (Disabling)
  Sender: FDA-Public Use
  Company Number: IT-TOLMAR, INC.-21IT026557

PATIENT
  Age: 82 Year
  Sex: Male
  Weight: 90 kg

DRUGS (9)
  1. RADIUM RA 223 DICHLORIDE [Suspect]
     Active Substance: RADIUM RA-223 DICHLORIDE
     Dosage: 6219 KBQ, Q 1 MONTH (EVERY FOUR WEEKS)
     Route: 042
     Dates: start: 20171228
  2. RADIUM RA 223 DICHLORIDE [Suspect]
     Active Substance: RADIUM RA-223 DICHLORIDE
     Dosage: 6219 KBQ, Q 1 MONTH (EVERY FOUR WEEKS)
     Route: 042
     Dates: start: 20180322
  3. RADIUM RA 223 DICHLORIDE [Suspect]
     Active Substance: RADIUM RA-223 DICHLORIDE
     Dosage: 6219 KBQ, Q 1 MONTH (EVERY FOUR WEEKS)
     Route: 042
     Dates: start: 20180419
  4. ENZALUTAMIDE [Suspect]
     Active Substance: ENZALUTAMIDE
     Indication: HORMONE-REFRACTORY PROSTATE CANCER
     Dosage: 160 MG, QD
     Route: 048
     Dates: start: 20171130
  5. ELIGARD [Suspect]
     Active Substance: LEUPROLIDE ACETATE
     Indication: PROSTATE CANCER
     Dosage: UNK
     Dates: start: 20160501
  6. RADIUM RA 223 DICHLORIDE [Suspect]
     Active Substance: RADIUM RA-223 DICHLORIDE
     Indication: HORMONE-REFRACTORY PROSTATE CANCER
     Dosage: 6219 KBQ, Q 1 MONTH (EVERY FOUR WEEKS)
     Route: 042
     Dates: start: 20171130
  7. RADIUM RA 223 DICHLORIDE [Suspect]
     Active Substance: RADIUM RA-223 DICHLORIDE
     Dosage: 6219 KBQ, Q 1 MONTH (EVERY FOUR WEEKS)
     Route: 042
     Dates: start: 20180222
  8. BICALUTAMIDE. [Concomitant]
     Active Substance: BICALUTAMIDE
     Indication: PRODUCT USED FOR UNKNOWN INDICATION
     Dosage: UNK
     Dates: start: 20160501, end: 20170926
  9. RADIUM RA 223 DICHLORIDE [Suspect]
     Active Substance: RADIUM RA-223 DICHLORIDE
     Dosage: 6219 KBQ, Q 1 MONTH (EVERY FOUR WEEKS)
     Route: 042
     Dates: start: 20180125

REACTIONS (2)
  - Pelvic fracture [Recovered/Resolved]
  - Pathological fracture [Recovered/Resolved]

NARRATIVE: CASE EVENT DATE: 20210129
